FAERS Safety Report 16077271 (Version 2)
Quarter: 2019Q1

REPORT INFORMATION
  Report Type: Report from Study
  Country: MA (occurrence: MA)
  Receive Date: 20190315
  Receipt Date: 20190328
  Transmission Date: 20190418
  Serious: Yes (Other)
  Sender: FDA-Public Use
  Company Number: MA-PFIZER INC-2019110520

PATIENT
  Age: 12 Year
  Sex: Male

DRUGS (1)
  1. TALIGLUCERASE ALFA [Suspect]
     Active Substance: TALIGLUCERASE ALFA
     Indication: GAUCHER^S DISEASE
     Dosage: 60 UNITS/KG, EVERY 2 WEEKS

REACTIONS (5)
  - Seizure [Unknown]
  - Headache [Unknown]
  - Carotid artery aneurysm [Unknown]
  - Papilloedema [Unknown]
  - Eyelid ptosis [Unknown]
